FAERS Safety Report 7554159-8 (Version None)
Quarter: 2011Q2

REPORT INFORMATION
  Report Type: 
  Country: None (occurrence: None)
  Receive Date: 20110617
  Receipt Date: 20110610
  Transmission Date: 20111010
  Serious: Yes (Other)
  Sender: FDA-Public Use
  Company Number: JP-BRACCO-004911

PATIENT
  Age: 77 Year
  Sex: Male

DRUGS (3)
  1. PROHANCE [Suspect]
     Indication: GAMMA RADIATION THERAPY TO BRAIN
     Route: 042
     Dates: start: 20110513, end: 20110513
  2. PROHANCE [Suspect]
     Indication: METASTASES TO CENTRAL NERVOUS SYSTEM
     Route: 042
     Dates: start: 20110513, end: 20110513
  3. PROHANCE [Suspect]
     Indication: DIAGNOSTIC PROCEDURE
     Route: 042
     Dates: start: 20110513, end: 20110513

REACTIONS (1)
  - SHOCK [None]
